FAERS Safety Report 5691489-9 (Version None)
Quarter: 2008Q1

REPORT INFORMATION
  Report Type: 
  Country: None (occurrence: None)
  Receive Date: 20080331
  Receipt Date: 20080318
  Transmission Date: 20080703
  Serious: No
  Sender: FDA-Public Use
  Company Number: US023022

PATIENT
  Sex: Male

DRUGS (1)
  1. FENTORA [Suspect]
     Indication: PAIN
     Dosage: 600 UG BUCCAL
     Route: 002

REACTIONS (2)
  - DRUG PRESCRIBING ERROR [None]
  - STOMATITIS [None]
